FAERS Safety Report 12788223 (Version 1)
Quarter: 2016Q3

REPORT INFORMATION
  Report Type: Spontaneous
  Country: US (occurrence: US)
  Receive Date: 20160928
  Receipt Date: 20160928
  Transmission Date: 20161109
  Serious: Yes (Life-Threatening, Hospitalization)
  Sender: FDA-Public Use
  Company Number: None

PATIENT
  Age: 34 Year
  Sex: Male
  Weight: 87.3 kg

DRUGS (1)
  1. CYCLOBENZAPRINE [Suspect]
     Active Substance: CYCLOBENZAPRINE
     Indication: PAIN
     Route: 048
     Dates: start: 20160826, end: 20160907

REACTIONS (3)
  - Urticaria [None]
  - Pruritus [None]
  - Pharyngeal oedema [None]

NARRATIVE: CASE EVENT DATE: 20160905
